FAERS Safety Report 15143758 (Version 1)
Quarter: 2018Q3

REPORT INFORMATION
  Report Type: Spontaneous
  Country: US (occurrence: US)
  Receive Date: 20180618
  Receipt Date: 20180618
  Transmission Date: 20181010
  Serious: Yes (Congenital Anomaly)
  Sender: FDA-Public Use
  Company Number: None

PATIENT
  Age: 7 Month
  Sex: Female
  Weight: 3 kg

DRUGS (1)
  1. RIBAVIRIN TABLET [Suspect]
     Active Substance: RIBAVIRIN

REACTIONS (5)
  - Developmental hip dysplasia [None]
  - Upper respiratory tract infection [None]
  - Cough [None]
  - Maternal drugs affecting foetus [None]
  - Rash [None]

NARRATIVE: CASE EVENT DATE: 2017
